FAERS Safety Report 10363270 (Version 2)
Quarter: 2014Q3

REPORT INFORMATION
  Report Type: Report from Study
  Country: US (occurrence: US)
  Receive Date: 20140805
  Receipt Date: 20140814
  Transmission Date: 20150326
  Serious: Yes (Hospitalization)
  Sender: FDA-Public Use
  Company Number: US-BRISTOL-MYERS SQUIBB COMPANY-21238423

PATIENT
  Age: 62 Year
  Sex: Female
  Weight: 81.63 kg

DRUGS (2)
  1. METHOTREXATE [Suspect]
     Active Substance: METHOTREXATE
     Dosage: 10 PILLS ONCE A WEEK BEFORE ABATACEPT AND 3 LITTLE PILLS, 7.5MG, ONCE A WEEK DURING HOSPITALIZATION
     Route: 048
  2. ABATACEPT SUBQ INJECTION 125MG/ML [Suspect]
     Active Substance: ABATACEPT
     Indication: RHEUMATOID ARTHRITIS
     Dosage: 1 DF=  125MG/ML, LAST USE OF ORENCIA WAS ON 18JUL2014
     Route: 058

REACTIONS (3)
  - Alopecia [Recovered/Resolved]
  - Arthralgia [Recovered/Resolved]
  - Liver function test abnormal [Recovered/Resolved]
